FAERS Safety Report 5115523-X (Version None)
Quarter: 2006Q3

REPORT INFORMATION
  Report Type: 
  Country: None (occurrence: None)
  Receive Date: 20060927
  Receipt Date: 20060925
  Transmission Date: 20061208
  Serious: Yes (Death, Life-Threatening)
  Sender: FDA-Public Use
  Company Number: 2006UW18726

PATIENT

DRUGS (1)
  1. NEXIUM [Suspect]
     Indication: GASTROINTESTINAL HAEMORRHAGE
     Route: 042
     Dates: start: 20060924

REACTIONS (1)
  - CONVULSION [None]
